FAERS Safety Report 15944522 (Version 4)
Quarter: 2019Q1

REPORT INFORMATION
  Report Type: Spontaneous
  Country: ZA (occurrence: ZA)
  Receive Date: 20190211
  Receipt Date: 20190312
  Transmission Date: 20190417
  Serious: Yes (Hospitalization, Other)
  Sender: FDA-Public Use
  Company Number: ZA-GLAXOSMITHKLINE-ZA2019GSK022068

PATIENT
  Age: 35 Year
  Sex: Female

DRUGS (1)
  1. ZINNAT [Suspect]
     Active Substance: CEFUROXIME AXETIL
     Indication: SINUSITIS
     Dosage: 500 MG, 1D
     Route: 048
     Dates: start: 20190104, end: 20190104

REACTIONS (10)
  - Abdominal pain upper [Not Recovered/Not Resolved]
  - Generalised erythema [Unknown]
  - Delirium [Unknown]
  - Pruritus [Recovering/Resolving]
  - Lip swelling [Unknown]
  - Mouth swelling [Recovering/Resolving]
  - Pharyngeal oedema [Recovering/Resolving]
  - Abnormal behaviour [Recovering/Resolving]
  - Diarrhoea [Not Recovered/Not Resolved]
  - Gait inability [Recovering/Resolving]

NARRATIVE: CASE EVENT DATE: 20190104
